FAERS Safety Report 19088295 (Version 1)
Quarter: 2021Q2

REPORT INFORMATION
  Report Type: Spontaneous
  Country: PL (occurrence: PL)
  Receive Date: 20210402
  Receipt Date: 20210402
  Transmission Date: 20210717
  Serious: Yes (Life-Threatening)
  Sender: FDA-Public Use
  Company Number: PL-BAYER-2021-115794

PATIENT
  Age: 70 Year
  Sex: Female
  Weight: 80 kg

DRUGS (1)
  1. ULTRAVIST [Suspect]
     Active Substance: IOPROMIDE
     Indication: BREAST CANCER
     Dosage: 80 ML, ONCE
     Route: 042
     Dates: start: 20210324, end: 20210324

REACTIONS (7)
  - Nausea [Recovered/Resolved]
  - Blood pressure diastolic decreased [Recovered/Resolved]
  - Dyspnoea [Recovered/Resolved]
  - Skin disorder [Recovered/Resolved]
  - Communication disorder [Recovered/Resolved]
  - Rash macular [Recovered/Resolved]
  - Malaise [Recovered/Resolved]

NARRATIVE: CASE EVENT DATE: 20210324
